FAERS Safety Report 5822465-0 (Version None)
Quarter: 2008Q3

REPORT INFORMATION
  Report Type: 
  Country: None (occurrence: None)
  Receive Date: 20080725
  Receipt Date: 20080205
  Transmission Date: 20090109
  Serious: No
  Sender: FDA-Public Use
  Company Number: US-AMGEN-KDL264250

PATIENT
  Sex: Female

DRUGS (4)
  1. PROCRIT [Suspect]
     Indication: MYELODYSPLASTIC SYNDROME
  2. SYNTHROID [Concomitant]
  3. VITAMIN CAP [Concomitant]
  4. PERCOCET [Concomitant]

REACTIONS (2)
  - HEADACHE [None]
  - MALAISE [None]
